FAERS Safety Report 22315120 (Version 2)
Quarter: 2023Q2

REPORT INFORMATION
  Report Type: Spontaneous
  Country: CA (occurrence: CA)
  Receive Date: 20230512
  Receipt Date: 20230512
  Transmission Date: 20230721
  Serious: Yes (Other)
  Sender: FDA-Public Use
  Company Number: CA-002147023-NVSC2023CA104032

PATIENT
  Sex: Female

DRUGS (4)
  1. TRIESENCE [Suspect]
     Active Substance: TRIAMCINOLONE ACETONIDE
     Indication: Diabetic retinal oedema
     Dosage: UNK UNK, Q4W
     Route: 065
     Dates: end: 202203
  2. AVASTIN [Suspect]
     Active Substance: BEVACIZUMAB
     Indication: Diabetic retinal oedema
     Dosage: UNK, Q4W
     Route: 065
     Dates: start: 202010, end: 202101
  3. AVASTIN [Suspect]
     Active Substance: BEVACIZUMAB
     Dosage: UNK, Q4W
     Route: 065
     Dates: start: 202205, end: 202209
  4. EYLEA [Suspect]
     Active Substance: AFLIBERCEPT
     Indication: Diabetic retinal oedema
     Dosage: UNK, Q4W
     Route: 065
     Dates: end: 202210

REACTIONS (3)
  - Macular oedema [Unknown]
  - Visual impairment [Unknown]
  - Drug ineffective [Unknown]
